FAERS Safety Report 14944853 (Version 2)
Quarter: 2018Q3

REPORT INFORMATION
  Report Type: Spontaneous
  Country: CZ (occurrence: CZ)
  Receive Date: 20180529
  Receipt Date: 20180709
  Transmission Date: 20181010
  Serious: Yes (Other)
  Sender: FDA-Public Use
  Company Number: CZ-ROCHE-2129901

PATIENT
  Sex: Female

DRUGS (5)
  1. ZOLEDRONIC ACID [Concomitant]
     Active Substance: ZOLEDRONIC ACID
     Route: 065
     Dates: start: 201506
  2. ANASTROZOL [Concomitant]
     Active Substance: ANASTROZOLE
     Route: 048
     Dates: start: 201607
  3. DOCETAXEL. [Suspect]
     Active Substance: DOCETAXEL
     Indication: BREAST CANCER METASTATIC
     Dosage: STANDARD REGIMEN
     Route: 065
     Dates: start: 20140319
  4. PERTUZUMAB. [Suspect]
     Active Substance: PERTUZUMAB
     Indication: BREAST CANCER METASTATIC
     Dosage: STANDARD REGIMEN?MOST RECENT DOSE ON 20/JAN/2016.
     Route: 065
     Dates: start: 20140319
  5. TRASTUZUMAB. [Suspect]
     Active Substance: TRASTUZUMAB
     Indication: BREAST CANCER METASTATIC
     Dosage: STANDARD REGIMEN?MOST RECENT DOSE ON 20/JAN/2016.
     Route: 065
     Dates: start: 20140319

REACTIONS (1)
  - Neurotoxicity [Unknown]
